FAERS Safety Report 4935050-X (Version None)
Quarter: 2006Q1

REPORT INFORMATION
  Report Type: 
  Country: None (occurrence: None)
  Receive Date: 20060306
  Receipt Date: 20060306
  Transmission Date: 20060701
  Serious: Yes (Hospitalization)
  Sender: FDA-Public Use
  Company Number: None

PATIENT
  Age: 27 Year
  Sex: Female
  Weight: 60.9 kg

DRUGS (4)
  1. FLUDARABINE [Suspect]
     Dosage: 58 MG /QD/IV
     Route: 042
     Dates: start: 20051228, end: 20060101
  2. CYTOXAN [Suspect]
     Dosage: 1.7 GGD/IV
     Route: 042
  3. UMBILICAL CORD BLOOD [Suspect]
  4. ATGAM [Suspect]
     Dates: start: 20060102, end: 20060103

REACTIONS (1)
  - TRANSPLANT FAILURE [None]
